FAERS Safety Report 8307589-0 (Version None)
Quarter: 2012Q2

REPORT INFORMATION
  Report Type: 
  Country: None (occurrence: None)
  Receive Date: 20120424
  Receipt Date: 20120411
  Transmission Date: 20120825
  Serious: Yes (Other)
  Sender: FDA-Public Use
  Company Number: BE-COVIDIEN/TYCO HEALTHCARE/MALLINCKRODT-T201201452

PATIENT
  Age: 56 Year
  Sex: Male

DRUGS (3)
  1. PRAVASTATIN [Concomitant]
     Indication: DYSLIPIDAEMIA
     Dosage: 20 MG, QD
  2. LOSARTAN [Concomitant]
     Indication: HYPERTENSION
     Dosage: 50 MG, QD
  3. PENNSAID [Suspect]
     Indication: PAIN IN EXTREMITY
     Dosage: 2 X 100 MG, QD
     Dates: start: 20110501

REACTIONS (2)
  - PULMONARY OEDEMA [None]
  - HAEMOPTYSIS [None]
